FAERS Safety Report 7570120-1 (Version None)
Quarter: 2011Q2

REPORT INFORMATION
  Report Type: 
  Country: None (occurrence: None)
  Receive Date: 20110624
  Receipt Date: 20110621
  Transmission Date: 20111010
  Serious: Yes (Death, Hospitalization)
  Sender: FDA-Public Use
  Company Number: GB-BRISTOL-MYERS SQUIBB COMPANY-15759996

PATIENT
  Age: 57 Year
  Sex: Female

DRUGS (13)
  1. DAUNORUBICIN HCL [Suspect]
     Indication: ACUTE MYELOID LEUKAEMIA
     Dates: start: 20110311, end: 20110320
  2. TEICOPLANIN [Concomitant]
     Dates: start: 20110401
  3. MYLOTARG [Suspect]
     Indication: MYELODYSPLASTIC SYNDROME
     Dates: start: 20110311, end: 20110320
  4. CYTARABINE [Suspect]
     Indication: ACUTE MYELOID LEUKAEMIA
     Dates: start: 20110311, end: 20110320
  5. CYTARABINE [Suspect]
     Indication: MYELODYSPLASTIC SYNDROME
     Dates: start: 20110311, end: 20110320
  6. CIPROFLOXACIN HCL [Concomitant]
     Dates: start: 20110410
  7. GENTAMICIN [Concomitant]
  8. AMBISOME [Concomitant]
     Dates: start: 20110411
  9. ETOPOSIDE [Suspect]
     Indication: ACUTE MYELOID LEUKAEMIA
     Dates: start: 20110311, end: 20110320
  10. ETOPOSIDE [Suspect]
     Indication: MYELODYSPLASTIC SYNDROME
     Dates: start: 20110311, end: 20110320
  11. MYLOTARG [Suspect]
     Indication: ACUTE MYELOID LEUKAEMIA
     Dates: start: 20110311, end: 20110320
  12. DAUNORUBICIN HCL [Suspect]
     Indication: MYELODYSPLASTIC SYNDROME
     Dates: start: 20110311, end: 20110320
  13. LORAZEPAM [Concomitant]
     Dosage: 1 DF=1-2MG
     Dates: start: 20110410

REACTIONS (3)
  - BRONCHOPNEUMONIA [None]
  - NEOPLASM MALIGNANT [None]
  - MYELODYSPLASTIC SYNDROME [None]
